FAERS Safety Report 4981836-5 (Version None)
Quarter: 2006Q2

REPORT INFORMATION
  Report Type: 
  Country: None (occurrence: None)
  Receive Date: 20060421
  Receipt Date: 20060410
  Transmission Date: 20061013
  Serious: Yes (Other)
  Sender: FDA-Public Use
  Company Number: HQWYE396517MAR06

PATIENT
  Age: 43 Year
  Sex: Female
  Weight: 86.26 kg

DRUGS (42)
  1. EFFEXOR [Suspect]
     Indication: BIPOLAR DISORDER
     Dosage: 75 MG, ORAL
     Route: 048
     Dates: start: 19980601, end: 20011001
  2. EFFEXOR [Suspect]
     Indication: DEPRESSION
     Dosage: 75 MG, ORAL
     Route: 048
     Dates: start: 19980601, end: 20011001
  3. EFFEXOR XR [Suspect]
     Indication: BIPOLAR DISORDER
     Dosage: 75 MG 2X PER 1 DAY, ORAL
     Route: 048
     Dates: start: 20011001, end: 20060101
  4. EFFEXOR XR [Suspect]
     Indication: DEPRESSION
     Dosage: 75 MG 2X PER 1 DAY, ORAL
     Route: 048
     Dates: start: 20011001, end: 20060101
  5. AMBIEN [Concomitant]
  6. TYLENOL EXTRA STRENGTH (ACETAMINOPHEN) [Concomitant]
  7. LITHIUM (LITHIUM) [Concomitant]
  8. XANAX [Concomitant]
  9. PREVACID [Concomitant]
  10. FENTANYL [Concomitant]
  11. BENZTROPINE MESYLATE [Concomitant]
  12. TRIAMTERENE AND HYDROCHLOROTHIAZID ^HARRIS^ (HYDROCHLOROTHIAZIDE/TRIAM [Concomitant]
  13. THIOTHIXENE [Concomitant]
  14. LIPITOR [Concomitant]
  15. ESTARDIOL (ESTRADIOL) [Concomitant]
  16. DEPAKOTE [Concomitant]
  17. PROPOXYPHENE NAPSYLATE W/ACETAMINOPHENE (DEXTROPROPOXYPHENE NAPSILATE/ [Concomitant]
  18. TRAZODONE HCL [Concomitant]
  19. AMITRIPTYLINE (AMITRIPTYLINE) [Concomitant]
  20. HALOPERIDOL [Concomitant]
  21. RANITIDINE [Concomitant]
  22. BENZTROPINE MESYLATE [Concomitant]
  23. CEFTIN [Concomitant]
  24. ERY-TAB (ERYTHROMYCIN) [Concomitant]
  25. AUGMENTIN '125' [Concomitant]
  26. METOCLOPRAMIDE [Concomitant]
  27. IBUPROFEN [Concomitant]
  28. CEPHALEXIN [Concomitant]
  29. ALBUTEROL [Concomitant]
  30. LEVAQUIN [Concomitant]
  31. BEXTRA [Concomitant]
  32. ULTRACET [Concomitant]
  33. PIROXICAM [Concomitant]
  34. MIRALAX [Concomitant]
  35. FLEET PHOSPHO-SODA (SODIUM PHOSPHATE DIBASIC/SODIUM PHOSPHATE MONOBASI [Concomitant]
  36. MOBIC [Concomitant]
  37. PRILOSEC [Concomitant]
  38. LINDANE (LINDANE) [Concomitant]
  39. KETOPROFEN [Concomitant]
  40. ETODOLAC [Concomitant]
  41. IMIPRAMINE [Concomitant]
  42. FLOVENT [Concomitant]

REACTIONS (34)
  - ABNORMAL BEHAVIOUR [None]
  - AGGRESSION [None]
  - ANOREXIA [None]
  - CHEST PAIN [None]
  - CONDITION AGGRAVATED [None]
  - CONSTIPATION [None]
  - DEPRESSION [None]
  - DRY MOUTH [None]
  - HEADACHE [None]
  - HEMIPARESIS [None]
  - HOSTILITY [None]
  - HYPERHIDROSIS [None]
  - HYPOAESTHESIA [None]
  - IMPULSIVE BEHAVIOUR [None]
  - INFLAMMATION [None]
  - INTENTIONAL OVERDOSE [None]
  - IRRITABILITY [None]
  - MENTAL STATUS CHANGES [None]
  - MOOD ALTERED [None]
  - MYOCARDIAL INFARCTION [None]
  - NAUSEA [None]
  - NERVOUSNESS [None]
  - NIGHT SWEATS [None]
  - PANIC ATTACK [None]
  - PARAESTHESIA [None]
  - POLLAKIURIA [None]
  - RESTLESSNESS [None]
  - SCREAMING [None]
  - SELF-INJURIOUS IDEATION [None]
  - SUICIDE ATTEMPT [None]
  - SWELLING [None]
  - TREMOR [None]
  - VISION BLURRED [None]
  - WEIGHT INCREASED [None]
